FAERS Safety Report 20491668 (Version 1)
Quarter: 2022Q1

REPORT INFORMATION
  Report Type: Report from Study
  Country: CA (occurrence: CA)
  Receive Date: 20220218
  Receipt Date: 20220218
  Transmission Date: 20220423
  Serious: Yes (Other)
  Sender: FDA-Public Use
  Company Number: CA-ELI_LILLY_AND_COMPANY-CA202202003535

PATIENT
  Age: 57 Year
  Sex: Male

DRUGS (15)
  1. CYMBALTA [Suspect]
     Active Substance: DULOXETINE HYDROCHLORIDE
     Indication: Product used for unknown indication
     Dosage: 60 MG, UNKNOWN
     Route: 065
  2. OCRELIZUMAB [Suspect]
     Active Substance: OCRELIZUMAB
     Indication: Relapsing-remitting multiple sclerosis
     Dosage: 600 MG, OTHER (1 IN EVERY 6 MONTHS)
     Route: 042
  3. OCRELIZUMAB [Suspect]
     Active Substance: OCRELIZUMAB
     Dosage: 300 MG, OTHER  (1 IN EVERY 2 WEEKS)
     Route: 042
  4. AMANTADINE [Concomitant]
     Active Substance: AMANTADINE
     Indication: Product used for unknown indication
  5. AMITRIPTYLINE HYDROCHLORIDE [Concomitant]
     Active Substance: AMITRIPTYLINE HYDROCHLORIDE
     Indication: Product used for unknown indication
  6. BACLOFEN [Concomitant]
     Active Substance: BACLOFEN
     Indication: Product used for unknown indication
     Dosage: 10 MG, UNKNOWN
     Route: 065
  7. CALCIUM PLUS MAGNESIUM [Concomitant]
     Indication: Product used for unknown indication
     Dosage: 2 DOSAGE FORM, DAILY
     Route: 065
  8. CYANOCOBALAMIN [Concomitant]
     Active Substance: CYANOCOBALAMIN
     Indication: Product used for unknown indication
  9. LYRICA [Concomitant]
     Active Substance: PREGABALIN
     Indication: Product used for unknown indication
  10. MIRABEGRON [Concomitant]
     Active Substance: MIRABEGRON
     Indication: Product used for unknown indication
     Dosage: 25 MG, UNKNOWN
     Route: 065
  11. MODAFINIL [Concomitant]
     Active Substance: MODAFINIL
     Indication: Product used for unknown indication
  12. HERBALS\PLANTAGO OVATA LEAF [Concomitant]
     Active Substance: HERBALS\PLANTAGO OVATA LEAF
     Indication: Product used for unknown indication
  13. VALACYCLOVIR [Concomitant]
     Active Substance: VALACYCLOVIR HYDROCHLORIDE
     Indication: Product used for unknown indication
  14. VALPROIC ACID [Concomitant]
     Active Substance: VALPROIC ACID
     Indication: Product used for unknown indication
  15. VITAMIN D3 [Concomitant]
     Active Substance: CHOLECALCIFEROL
     Indication: Product used for unknown indication
     Dosage: 4000 INTERNATIONAL UNIT, UNKNOWN
     Route: 065

REACTIONS (20)
  - Bladder disorder [Not Recovered/Not Resolved]
  - Balance disorder [Not Recovered/Not Resolved]
  - Dyspnoea [Not Recovered/Not Resolved]
  - Eye pain [Not Recovered/Not Resolved]
  - Muscular weakness [Not Recovered/Not Resolved]
  - Oral herpes [Not Recovered/Not Resolved]
  - Productive cough [Not Recovered/Not Resolved]
  - Cough [Not Recovered/Not Resolved]
  - Micturition urgency [Not Recovered/Not Resolved]
  - Chest pain [Not Recovered/Not Resolved]
  - Diplopia [Not Recovered/Not Resolved]
  - Gait disturbance [Not Recovered/Not Resolved]
  - Muscle spasticity [Not Recovered/Not Resolved]
  - Night sweats [Not Recovered/Not Resolved]
  - Pain in extremity [Not Recovered/Not Resolved]
  - Vision blurred [Not Recovered/Not Resolved]
  - Headache [Not Recovered/Not Resolved]
  - Malaise [Not Recovered/Not Resolved]
  - Urinary retention [Not Recovered/Not Resolved]
  - Therapeutic product effect decreased [Not Recovered/Not Resolved]
